FAERS Safety Report 8291337 (Version 4)
Quarter: 2013Q2

REPORT INFORMATION
  Report Type: Spontaneous
  Country: US (occurrence: None)
  Receive Date: 20111122
  Receipt Date: 20120426
  Transmission Date: 20140414
  Serious: No
  Sender: FDA-Public Use
  Company Number: PHHY2011US42361

PATIENT
  Age: 53 Year
  Sex: Male

DRUGS (6)
  1. GILENYA [Suspect]
     Indication: MULTIPLE SCLEROSIS
     Dosage: 0.5 MG, DAILY, ORAL
     Route: 048
     Dates: start: 20110323, end: 201108
  2. BACLOFEN (BACLOFEN) [Concomitant]
  3. SEROQUEL (QUETIAPINE FUMARATE) [Concomitant]
  4. NEXIUM (ESOMEPRAZOLE MAGNESIUM) [Concomitant]
  5. ZYRTEC (CETIRIZINE HYDROCHLORIDE) [Concomitant]
  6. WELLBUTRIN XL (BUPROPION HYDROCHLORIDE)(TABLETS)(BUPROPION HYDROCHLORIDE) [Concomitant]

REACTIONS (4)
  - NASOPHARYNGITIS [None]
  - COUGH [None]
  - Hypoaesthesia [None]
  - Paraesthesia [None]
